FAERS Safety Report 18650735 (Version 2)
Quarter: 2020Q4

REPORT INFORMATION
  Report Type: Report from Study
  Country: None (occurrence: US)
  Receive Date: 20201223
  Receipt Date: 20201224
  Transmission Date: 20210114
  Serious: Yes (Other)
  Sender: FDA-Public Use
  Company Number: US-ABBVIE-20K-163-3698188-00

PATIENT
  Age: 77 Year
  Sex: Female

DRUGS (1)
  1. HUMIRA [Suspect]
     Active Substance: ADALIMUMAB
     Indication: RHEUMATOID ARTHRITIS
     Route: 058

REACTIONS (6)
  - Head injury [Unknown]
  - Epistaxis [Unknown]
  - Fall [Unknown]
  - Syncope [Unknown]
  - Loss of consciousness [Unknown]
  - Headache [Unknown]

NARRATIVE: CASE EVENT DATE: 20201217
